FAERS Safety Report 6534659-X (Version None)
Quarter: 2010Q1

REPORT INFORMATION
  Report Type: 
  Country: None (occurrence: None)
  Receive Date: 20100112
  Receipt Date: 20100105
  Transmission Date: 20100710
  Serious: Yes (Death)
  Sender: FDA-Public Use
  Company Number: GXKR2010BR00552

PATIENT
  Sex: Female

DRUGS (1)
  1. CAPTOPRIL (NGX) [Suspect]
     Route: 048

REACTIONS (1)
  - DEATH [None]
